FAERS Safety Report 8763869 (Version 1)
Quarter: 2012Q4

REPORT INFORMATION
  Report Type: 
  Country: US (occurrence: US)
  Receive Date: 20120831
  Receipt Date: 20120831
  Transmission Date: 20130627
  Serious: Yes (Life-Threatening, Hospitalization, Other)
  Sender: FDA-Public Use
  Company Number: US-PAR PHARMACEUTICAL, INC-2012SCPR004592

PATIENT

DRUGS (5)
  1. METRONIDAZOLE [Suspect]
     Indication: EVIDENCE BASED TREATMENT
     Dosage: UNK, Unknown
     Route: 042
  2. VANCOMYCIN [Suspect]
     Indication: EVIDENCE BASED TREATMENT
     Dosage: UNK, Unknown
     Route: 042
  3. LEVOFLOXACIN [Suspect]
     Indication: EVIDENCE BASED TREATMENT
     Dosage: UNK, Unknown
     Route: 042
  4. FLUCONAZOLE [Suspect]
     Indication: EVIDENCE BASED TREATMENT
     Dosage: UNK, Unknown
     Route: 042
  5. ORAL ANTIDIABETICS [Concomitant]
     Indication: TYPE 2 DIABETES MELLITUS
     Dosage: UNK, Unknown
     Route: 048

REACTIONS (6)
  - Respiratory distress [Recovering/Resolving]
  - Multi-organ failure [Recovering/Resolving]
  - Drug reaction with eosinophilia and systemic symptoms [Recovering/Resolving]
  - Arrhythmia supraventricular [Recovering/Resolving]
  - Oropharyngeal swelling [Recovering/Resolving]
  - Tracheal oedema [Recovering/Resolving]
